FAERS Safety Report 12550625 (Version 1)
Quarter: 2016Q3

REPORT INFORMATION
  Report Type: Report from Study
  Country: BR (occurrence: BR)
  Receive Date: 20160712
  Receipt Date: 20160712
  Transmission Date: 20161109
  Serious: Yes (Hospitalization)
  Sender: FDA-Public Use
  Company Number: BR-ABBVIE-16K-020-1671974-00

PATIENT
  Sex: Male
  Weight: 83 kg

DRUGS (12)
  1. KETOPROFEN. [Concomitant]
     Active Substance: KETOPROFEN
     Indication: PAIN
     Route: 048
     Dates: start: 2012
  2. CYCLOBENZAPRINE [Concomitant]
     Active Substance: CYCLOBENZAPRINE
     Indication: PAIN
     Route: 048
     Dates: start: 2012
  3. PANTOPRAZOLE [Concomitant]
     Active Substance: PANTOPRAZOLE SODIUM
     Indication: GASTRIC DISORDER
  4. METHOTREXATE. [Concomitant]
     Active Substance: METHOTREXATE
     Indication: PRODUCT USED FOR UNKNOWN INDICATION
     Route: 048
     Dates: start: 2012
  5. FOLIC ACID. [Concomitant]
     Active Substance: FOLIC ACID
     Indication: PRODUCT USED FOR UNKNOWN INDICATION
     Route: 048
     Dates: start: 2012
  6. PREDNISONE. [Concomitant]
     Active Substance: PREDNISONE
     Indication: PAIN
     Route: 048
     Dates: start: 2012
  7. PANTOPRAZOLE [Concomitant]
     Active Substance: PANTOPRAZOLE SODIUM
     Indication: PROPHYLAXIS
     Route: 048
     Dates: start: 2015
  8. NEOSORO [Concomitant]
     Indication: RHINITIS
     Dosage: 1 DROP IN EACH NOSTRIL
     Route: 045
     Dates: start: 1988
  9. HUMIRA [Suspect]
     Active Substance: ADALIMUMAB
     Indication: RHEUMATOID ARTHRITIS
     Route: 058
     Dates: start: 20120101
  10. NORTRIPTYLINE [Concomitant]
     Active Substance: NORTRIPTYLINE
     Indication: PAIN
     Route: 048
     Dates: start: 2012
  11. PAROXETINE. [Concomitant]
     Active Substance: PAROXETINE
     Indication: PAIN
     Route: 048
     Dates: start: 2012
  12. CODEINE [Concomitant]
     Active Substance: CODEINE
     Indication: PAIN
     Route: 048
     Dates: start: 2012

REACTIONS (12)
  - Mental disorder [Recovering/Resolving]
  - Chills [Recovered/Resolved]
  - Skin wound [Unknown]
  - Joint swelling [Recovered/Resolved]
  - Weight decreased [Recovered/Resolved]
  - Memory impairment [Recovering/Resolving]
  - Nausea [Recovered/Resolved]
  - Pruritus [Recovered/Resolved]
  - Peripheral swelling [Recovered/Resolved]
  - Umbilical hernia [Recovered/Resolved]
  - Blister [Recovered/Resolved]
  - Stress [Recovering/Resolving]

NARRATIVE: CASE EVENT DATE: 2015
